FAERS Safety Report 5005352-X (Version None)
Quarter: 2006Q2

REPORT INFORMATION
  Report Type: 
  Country: None (occurrence: None)
  Receive Date: 20060518
  Receipt Date: 20050427
  Transmission Date: 20061013
  Serious: Yes (Hospitalization, Other)
  Sender: FDA-Public Use
  Company Number: US-MERCK-0504USA04747

PATIENT
  Age: 81 Year
  Sex: Female
  Weight: 84 kg

DRUGS (1)
  1. VIOXX [Suspect]
     Indication: ARTHRITIS
     Route: 048

REACTIONS (12)
  - ANGINA UNSTABLE [None]
  - BRONCHITIS [None]
  - CARDIOMEGALY [None]
  - CARPAL TUNNEL DECOMPRESSION [None]
  - CEREBROVASCULAR ACCIDENT [None]
  - CHEST PAIN [None]
  - CONFUSIONAL STATE [None]
  - CORONARY ARTERY OCCLUSION [None]
  - DIZZINESS [None]
  - NECK PAIN [None]
  - PNEUMONIA [None]
  - VISION BLURRED [None]
